FAERS Safety Report 4284827-5 (Version None)
Quarter: 2004Q1

REPORT INFORMATION
  Report Type: 
  Country: None (occurrence: None)
  Receive Date: 20040202
  Receipt Date: 20040116
  Transmission Date: 20041129
  Serious: Yes (Hospitalization)
  Sender: FDA-Public Use
  Company Number: 2004SE00022

PATIENT
  Age: 24 Year
  Sex: Male

DRUGS (7)
  1. SEROQUEL [Suspect]
     Indication: SCHIZOPHRENIA
     Dosage: 300 MG QD PO
     Route: 048
     Dates: start: 20030508, end: 20031231
  2. SEROQUEL [Suspect]
     Indication: SCHIZOPHRENIA
     Dosage: 700 MG QD PO
     Route: 048
     Dates: start: 20031231
  3. REMERON [Suspect]
     Dosage: 45 MG QD PO
     Route: 048
     Dates: end: 20031223
  4. EFFEXOR [Suspect]
     Dosage: 225 MG QD PO
     Route: 048
     Dates: end: 20031223
  5. CISORDINOL [Concomitant]
  6. DISIPAL [Concomitant]
  7. STILNOCT [Concomitant]

REACTIONS (3)
  - ABDOMINAL PAIN UPPER [None]
  - HENOCH-SCHONLEIN PURPURA [None]
  - SKIN BLEEDING [None]
